FAERS Safety Report 4563030-5 (Version None)
Quarter: 2005Q1

REPORT INFORMATION
  Report Type: 
  Country: None (occurrence: None)
  Receive Date: 20050126
  Receipt Date: 20050110
  Transmission Date: 20050727
  Serious: Yes (Hospitalization)
  Sender: FDA-Public Use
  Company Number: TRP_0051_2005

PATIENT
  Age: 42 Year
  Sex: Female

DRUGS (3)
  1. RIBASPHERE [Suspect]
     Indication: HEPATITIS C
     Dates: start: 20040611
  2. PEG-INTRON [Suspect]
     Indication: HEPATITIS C
     Dates: start: 20040611
  3. LEVOXYL [Concomitant]

REACTIONS (2)
  - HYSTERECTOMY [None]
  - WOUND INFECTION [None]
